FAERS Safety Report 15360076 (Version 2)
Quarter: 2018Q3

REPORT INFORMATION
  Report Type: Report from Study
  Country: DE (occurrence: DE)
  Receive Date: 20180907
  Receipt Date: 20180922
  Transmission Date: 20181010
  Serious: Yes (Hospitalization, Other)
  Sender: FDA-Public Use
  Company Number: DE-ACCORD-071331

PATIENT
  Age: 68 Year
  Sex: Female
  Weight: 49 kg

DRUGS (26)
  1. DUROGESIC SMAT [Concomitant]
     Active Substance: FENTANYL
     Dates: start: 20170221
  2. MOVICOL [Concomitant]
     Active Substance: POLYETHYLENE GLYCOL 3350\POTASSIUM CHLORIDE\SODIUM BICARBONATE\SODIUM CHLORIDE
     Dates: start: 2007
  3. XARELTO [Concomitant]
     Active Substance: RIVAROXABAN
     Dates: start: 20170809
  4. LYRICA [Concomitant]
     Active Substance: PREGABALIN
     Dates: start: 20180110
  5. ADDEL N [Concomitant]
     Active Substance: UNSPECIFIED INGREDIENT
     Dates: start: 20180406, end: 20180406
  6. ONDANSETRON [Concomitant]
     Active Substance: ONDANSETRON
     Dates: start: 20170217
  7. DICLOFENAC [Suspect]
     Active Substance: DICLOFENAC
     Indication: PRODUCT USED FOR UNKNOWN INDICATION
     Dates: end: 20170424
  8. CENTRUM A TO ZINC [Concomitant]
     Dates: start: 20180105
  9. RINGERS SOLUTION [Concomitant]
     Active Substance: CALCIUM CHLORIDE\POTASSIUM CHLORIDE\SODIUM CHLORIDE
     Dates: start: 20180406, end: 20180406
  10. FENTANYL. [Concomitant]
     Active Substance: FENTANYL
     Dates: start: 20170227
  11. FLUOROURACIL. [Suspect]
     Active Substance: FLUOROURACIL
     Indication: ADENOCARCINOMA GASTRIC
     Dosage: 3816 UNK
     Route: 042
     Dates: start: 20180405, end: 20180407
  12. METAMIZOLE SODIUM [Suspect]
     Active Substance: METAMIZOLE SODIUM
     Indication: ABDOMINAL PAIN UPPER
     Route: 042
     Dates: start: 20180109
  13. SYMBICORT [Concomitant]
     Active Substance: BUDESONIDE\FORMOTEROL FUMARATE DIHYDRATE
     Dates: start: 20170511
  14. MAGNESIUM HYDROXIDE. [Concomitant]
     Active Substance: MAGNESIUM HYDROXIDE
     Dates: start: 19980101
  15. PANTOPRAZOLE [Concomitant]
     Active Substance: PANTOPRAZOLE
     Dates: start: 20170215
  16. CLEXANE [Suspect]
     Active Substance: ENOXAPARIN SODIUM
     Indication: PRODUCT USED FOR UNKNOWN INDICATION
  17. OXALIPLATIN. [Suspect]
     Active Substance: OXALIPLATIN
     Indication: ADENOCARCINOMA GASTRIC
     Dosage: 135 UNK
     Route: 042
     Dates: start: 20170627, end: 20170627
  18. KREON [Concomitant]
     Active Substance: PANCRELIPASE
     Dates: start: 20150603
  19. CERNEVIT [Concomitant]
     Active Substance: VITAMINS
     Dates: start: 20180406, end: 20180406
  20. TRAMAL [Suspect]
     Active Substance: TRAMADOL
     Indication: PRODUCT USED FOR UNKNOWN INDICATION
  21. PERFALGAN [Suspect]
     Active Substance: ACETAMINOPHEN
     Indication: PRODUCT USED FOR UNKNOWN INDICATION
  22. FOLINIC ACID [Suspect]
     Active Substance: LEUCOVORIN
     Indication: ADENOCARCINOMA GASTRIC
     Route: 042
     Dates: start: 20180405, end: 20180405
  23. METOCLOPRAMIDE. [Concomitant]
     Active Substance: METOCLOPRAMIDE
     Dates: start: 20180110
  24. INNOHEP [Concomitant]
     Active Substance: TINZAPARIN SODIUM
     Dates: start: 20170424
  25. NEUROTRAT B12 [Concomitant]
     Dates: start: 20180125
  26. LAXANS AL [Concomitant]
     Dates: start: 2007

REACTIONS (2)
  - Hip fracture [Recovered/Resolved]
  - Off label use [Unknown]

NARRATIVE: CASE EVENT DATE: 20180506
